FAERS Safety Report 7945310-6 (Version None)
Quarter: 2011Q4

REPORT INFORMATION
  Report Type: 
  Country: None (occurrence: None)
  Receive Date: 20111129
  Receipt Date: 20110124
  Transmission Date: 20120403
  Serious: No
  Sender: FDA-Public Use
  Company Number: US-GLAXOSMITHKLINE-A0908603A

PATIENT
  Age: 54 Year
  Sex: Female

DRUGS (12)
  1. ANAPRIL [Concomitant]
  2. SPIRONOLACTONE [Concomitant]
  3. ANASTROZOLE [Concomitant]
  4. ASPIRIN [Concomitant]
  5. AMLODIPINE [Concomitant]
  6. SEROQUEL [Concomitant]
  7. WELLBUTRIN SR [Suspect]
     Indication: DEPRESSION
     Dosage: 100MG TWICE PER DAY
     Route: 048
  8. HYDROCHLOROTHIAZIDE [Concomitant]
  9. LORAZEPAM [Concomitant]
  10. KLONOPIN [Concomitant]
  11. METOPROLOL TARTRATE [Concomitant]
  12. SOMA [Concomitant]

REACTIONS (1)
  - HEADACHE [None]
